FAERS Safety Report 6397751-9 (Version None)
Quarter: 2009Q4

REPORT INFORMATION
  Report Type: 
  Country: None (occurrence: None)
  Receive Date: 20091012
  Receipt Date: 20091006
  Transmission Date: 20100525
  Serious: Yes (Other)
  Sender: FDA-Public Use
  Company Number: BR-BAXTER-2009BH014692

PATIENT
  Age: 7 Year
  Sex: Male

DRUGS (1)
  1. DEXTROSE 5% [Suspect]
     Indication: DRUG USE FOR UNKNOWN INDICATION
     Route: 042
     Dates: start: 20090922, end: 20090922

REACTIONS (3)
  - CHILLS [None]
  - HYPOTENSION [None]
  - PYREXIA [None]
